FAERS Safety Report 7176366-9 (Version None)
Quarter: 2010Q4

REPORT INFORMATION
  Report Type: 
  Country: None (occurrence: None)
  Receive Date: 20101220
  Receipt Date: 20100729
  Transmission Date: 20110411
  Serious: No
  Sender: FDA-Public Use
  Company Number: US-TYCO HEALTHCARE/MALLINCKRODT-T201001731

PATIENT
  Sex: Female
  Weight: 58.957 kg

DRUGS (3)
  1. OPTIMARK [Suspect]
     Indication: NUCLEAR MAGNETIC RESONANCE IMAGING
     Dosage: 15 ML, SINGLE
     Route: 042
     Dates: start: 20100719, end: 20100719
  2. MEDROL [Concomitant]
     Indication: PREMEDICATION
     Dosage: 32 MG, 12 HRS PRIOR TO PROCEDURE
     Dates: start: 20100701, end: 20100701
  3. MEDROL [Concomitant]
     Dosage: 32 MG, 2 HRS PRIOR TO PROCEDURE
     Dates: start: 20100719, end: 20100719

REACTIONS (2)
  - PARAESTHESIA [None]
  - PARAESTHESIA ORAL [None]
